FAERS Safety Report 10179771 (Version 1)
Quarter: 2014Q2

REPORT INFORMATION
  Report Type: Spontaneous
  Country: US (occurrence: None)
  Receive Date: 20140515
  Receipt Date: 20140515
  Transmission Date: 20141212
  Serious: Yes (Other)
  Sender: FDA-Public Use
  Company Number: UTC-047158

PATIENT
  Age: 57 Year
  Sex: Male
  Weight: 72.57 kg

DRUGS (4)
  1. REMODULIN [Suspect]
     Indication: COR PULMONALE CHRONIC
     Dosage: (0.026 UG/KG, 1 IN 1 MIN)?
     Route: 041
     Dates: start: 20121010
  2. COUMADIN (WARFARIN SODIUM) [Concomitant]
  3. SILDENAFIL (SILDENAFIL) [Concomitant]
  4. FLOLAN (EPOPROSTENOL) [Concomitant]

REACTIONS (8)
  - Pyrexia [None]
  - International normalised ratio decreased [None]
  - Dyspnoea exertional [None]
  - Pulmonary arterial pressure increased [None]
  - Walking distance test abnormal [None]
  - Dehydration [None]
  - Fall [None]
  - Dyspnoea [None]
